FAERS Safety Report 20196091 (Version 3)
Quarter: 2021Q4

REPORT INFORMATION
  Report Type: Spontaneous
  Country: US (occurrence: US)
  Receive Date: 20211216
  Receipt Date: 20211228
  Transmission Date: 20220303
  Serious: Yes (Other)
  Sender: FDA-Public Use
  Company Number: US-PFIZER INC-202101738342

PATIENT
  Age: 55 Year
  Sex: Male
  Weight: 71.655 kg

DRUGS (3)
  1. NEURONTIN [Suspect]
     Active Substance: GABAPENTIN
     Indication: Seizure
     Dosage: 4800 MG, 1X/DAY (SIX 800 MG PILLS A DAY)
  2. NEURONTIN [Suspect]
     Active Substance: GABAPENTIN
     Dosage: 4800 MG, DAILY (6 TABLETS A DAY)
     Route: 048
  3. DIVALPROEX SODIUM [Concomitant]
     Active Substance: DIVALPROEX SODIUM
     Dosage: 2000 MG, DAILY (4 TABLETS A DAY)

REACTIONS (5)
  - Epilepsy [Unknown]
  - Drug ineffective [Unknown]
  - Hypermetabolism [Unknown]
  - Memory impairment [Not Recovered/Not Resolved]
  - Overdose [Unknown]
